FAERS Safety Report 17348502 (Version 1)
Quarter: 2020Q1

REPORT INFORMATION
  Report Type: Report from Study
  Country: US (occurrence: US)
  Receive Date: 20200129
  Receipt Date: 20200129
  Transmission Date: 20200409
  Serious: No
  Sender: FDA-Public Use
  Company Number: US-EXELIXIS-CABO-19024141

PATIENT
  Age: 51 Year
  Sex: Male

DRUGS (2)
  1. COMETRIQ [Suspect]
     Active Substance: CABOZANTINIB S-MALATE
     Indication: THYROID CANCER
     Dosage: 120 MG, QD
     Route: 048
     Dates: start: 20190903, end: 201910
  2. COMETRIQ [Suspect]
     Active Substance: CABOZANTINIB S-MALATE
     Indication: PARATHYROID TUMOUR MALIGNANT

REACTIONS (3)
  - Pain [Unknown]
  - Asthenia [Unknown]
  - Genital rash [Recovering/Resolving]

NARRATIVE: CASE EVENT DATE: 201909
